FAERS Safety Report 14933028 (Version 4)
Quarter: 2019Q1

REPORT INFORMATION
  Report Type: Spontaneous
  Country: US (occurrence: US)
  Receive Date: 20180524
  Receipt Date: 20190104
  Transmission Date: 20190417
  Serious: No
  Sender: FDA-Public Use
  Company Number: US-PFIZER INC-2018213355

PATIENT
  Age: 76 Year
  Sex: Female

DRUGS (7)
  1. LYRICA [Suspect]
     Active Substance: PREGABALIN
     Indication: MUSCULOSKELETAL STIFFNESS
     Dosage: 300 MG, 3X/DAY (TAKE 1 CAP IN AM, 1 CAP IN THE AFTERNOON AND 1 CAP AT HS)
  2. LYRICA [Suspect]
     Active Substance: PREGABALIN
     Indication: POOR QUALITY SLEEP
  3. LYRICA [Suspect]
     Active Substance: PREGABALIN
     Indication: JOINT SWELLING
  4. LYRICA [Suspect]
     Active Substance: PREGABALIN
     Indication: PAIN
     Dosage: UNK
  5. LYRICA [Suspect]
     Active Substance: PREGABALIN
     Indication: HYPOAESTHESIA
  6. LYRICA [Suspect]
     Active Substance: PREGABALIN
     Indication: ABDOMINAL DISCOMFORT
  7. LYRICA [Suspect]
     Active Substance: PREGABALIN
     Indication: PERIPHERAL SWELLING

REACTIONS (2)
  - Drug ineffective [Unknown]
  - Prescribed overdose [Unknown]
